FAERS Safety Report 12638023 (Version 2)
Quarter: 2016Q4

REPORT INFORMATION
  Report Type: Spontaneous
  Country: US (occurrence: US)
  Receive Date: 20160809
  Receipt Date: 20161108
  Transmission Date: 20170207
  Serious: No
  Sender: FDA-Public Use
  Company Number: US-SA-2016SA111825

PATIENT
  Age: 81 Year
  Sex: Female
  Weight: 58.97 kg

DRUGS (8)
  1. ALIROCUMAB PREFILLED PEN [Concomitant]
     Active Substance: ALIROCUMAB
     Indication: BLOOD CHOLESTEROL INCREASED
     Dates: start: 20160425, end: 20160606
  2. HYDROCHLOROTHIAZIDE/TRIAMTERENE [Concomitant]
  3. L-THYROXINE [Concomitant]
     Active Substance: LEVOTHYROXINE
  4. ASPIRIN. [Concomitant]
     Active Substance: ASPIRIN
     Dosage: 81MG
  5. PRALUENT [Suspect]
     Active Substance: ALIROCUMAB
     Indication: BLOOD CHOLESTEROL INCREASED
     Dosage: DOSE:75 MILLIGRAM(S)/MILLILITRE
     Route: 058
     Dates: start: 20160425, end: 20160606
  6. RYTHMOL [Concomitant]
     Active Substance: PROPAFENONE HYDROCHLORIDE
  7. ELIQUIS [Concomitant]
     Active Substance: APIXABAN
  8. XANAX [Concomitant]
     Active Substance: ALPRAZOLAM

REACTIONS (5)
  - Anxiety [Recovered/Resolved]
  - Nervousness [Recovered/Resolved]
  - Asthenia [Recovered/Resolved]
  - Thinking abnormal [Recovered/Resolved]
  - Tremor [Recovered/Resolved]

NARRATIVE: CASE EVENT DATE: 20160509
